FAERS Safety Report 6517734-5 (Version None)
Quarter: 2009Q4

REPORT INFORMATION
  Report Type: 
  Country: None (occurrence: None)
  Receive Date: 20091218
  Receipt Date: 20091207
  Transmission Date: 20100525
  Serious: Yes (Hospitalization, Other)
  Sender: FDA-Public Use
  Company Number: 2009-198042-NL

PATIENT
  Age: 22 Year
  Sex: Female
  Weight: 72.5755 kg

DRUGS (2)
  1. NUVARING [Suspect]
     Indication: CONTRACEPTION
     Dosage: 1 DF
     Dates: start: 20060901, end: 20070601
  2. CHLOROQUINE PHOSPHATE [Concomitant]

REACTIONS (11)
  - ABDOMINAL PAIN LOWER [None]
  - DEEP VEIN THROMBOSIS [None]
  - DRUG INEFFECTIVE [None]
  - HYPERCOAGULATION [None]
  - MUSCLE STRAIN [None]
  - MUSCULOSKELETAL CHEST PAIN [None]
  - NERVOUSNESS [None]
  - OVARIAN CYST [None]
  - PULMONARY EMBOLISM [None]
  - TELANGIECTASIA [None]
  - VARICOSE VEIN [None]
